FAERS Safety Report 19228535 (Version 1)
Quarter: 2021Q2

REPORT INFORMATION
  Report Type: Spontaneous
  Country: US (occurrence: US)
  Receive Date: 20210506
  Receipt Date: 20210506
  Transmission Date: 20210717
  Serious: Yes (Other)
  Sender: FDA-Public Use
  Company Number: US-BEH-2021131453

PATIENT
  Sex: Male

DRUGS (15)
  1. CYSTINE [Concomitant]
     Active Substance: CYSTINE
     Route: 065
  2. HIZENTRA [Suspect]
     Active Substance: HUMAN IMMUNOGLOBULIN G
     Indication: CHRONIC INFLAMMATORY DEMYELINATING POLYRADICULONEUROPATHY
     Dosage: 18 GRAM, QW
     Route: 058
     Dates: start: 2019
  3. HOMOCYSTEINE FORMULA [Concomitant]
     Route: 065
  4. AMOXICILLIN. [Concomitant]
     Active Substance: AMOXICILLIN
     Route: 065
  5. CLARITHROMYCIN ACCEDO [Concomitant]
     Route: 065
  6. OMEGA 3 AGE DEFENCE [Concomitant]
     Route: 065
  7. BOSWELLIA SERRATA GUM;BROMELAINS;CURCUMA LONGA ROOT;PICRORHIZA KURROA [Concomitant]
     Route: 065
  8. PROBIOTICS NOS [Concomitant]
     Active Substance: PROBIOTICS NOS
     Route: 065
  9. HIZENTRA [Suspect]
     Active Substance: HUMAN IMMUNOGLOBULIN G
     Dosage: UNK
     Route: 058
  10. RHODIOLA ROSEA [MAGNESIUM;RHODIOLA ROSEA ROOT;THIAMINE HYDROCHLORIDE] [Concomitant]
     Route: 065
  11. ZINC. [Concomitant]
     Active Substance: ZINC
     Route: 065
  12. LANSOPRAZOLE. [Concomitant]
     Active Substance: LANSOPRAZOLE
     Route: 065
  13. ASPIRIN (E.C.) [Concomitant]
     Active Substance: ASPIRIN
     Dosage: 81 MILLIGRAM
     Route: 065
  14. MAGNESIUM [Concomitant]
     Active Substance: MAGNESIUM
     Route: 065
  15. QUERCETIN [Concomitant]
     Active Substance: QUERCETIN
     Route: 065

REACTIONS (9)
  - Barrett^s oesophagus [Unknown]
  - Constipation [Unknown]
  - Dysphagia [Unknown]
  - Vertigo [Unknown]
  - Blood pressure abnormal [Unknown]
  - Infusion site nodule [Unknown]
  - Helicobacter infection [Unknown]
  - Red blood cell sedimentation rate increased [Unknown]
  - Heart rate abnormal [Unknown]
